FAERS Safety Report 6641943-8 (Version None)
Quarter: 2010Q1

REPORT INFORMATION
  Report Type: 
  Country: None (occurrence: None)
  Receive Date: 20100319
  Receipt Date: 20100315
  Transmission Date: 20100710
  Serious: Yes (Other)
  Sender: FDA-Public Use
  Company Number: PHHY2009BR41961

PATIENT
  Age: 64 Year
  Sex: Female
  Weight: 64 kg

DRUGS (3)
  1. DIOVAN [Suspect]
     Indication: HYPERTENSION
     Dosage: 80 MG DAILY
     Dates: start: 20090801
  2. FRONTAL [Concomitant]
     Indication: INSOMNIA
     Dosage: ? TABLET, SPORADICALLY
     Dates: end: 20090801
  3. VACCINES [Concomitant]

REACTIONS (7)
  - ANORECTAL DISCOMFORT [None]
  - DEPRESSED MOOD [None]
  - FEELING ABNORMAL [None]
  - STRESS [None]
  - URTICARIA [None]
  - UTERINE DISORDER [None]
  - VULVOVAGINAL DISCOMFORT [None]
